FAERS Safety Report 25806868 (Version 1)
Quarter: 2025Q3

REPORT INFORMATION
  Report Type: Spontaneous
  Country: TW (occurrence: TW)
  Receive Date: 20250916
  Receipt Date: 20250916
  Transmission Date: 20251020
  Serious: Yes (Death)
  Sender: MYLAN
  Company Number: TW-MYLANLABS-2025M1077862

PATIENT
  Age: 67 Year
  Sex: Male

DRUGS (60)
  1. DOXORUBICIN [Suspect]
     Active Substance: DOXORUBICIN
     Indication: Plasmablastic lymphoma
  2. DOXORUBICIN [Suspect]
     Active Substance: DOXORUBICIN
  3. DOXORUBICIN [Suspect]
     Active Substance: DOXORUBICIN
     Route: 065
  4. DOXORUBICIN [Suspect]
     Active Substance: DOXORUBICIN
     Route: 065
  5. DOXORUBICIN [Suspect]
     Active Substance: DOXORUBICIN
  6. DOXORUBICIN [Suspect]
     Active Substance: DOXORUBICIN
  7. DOXORUBICIN [Suspect]
     Active Substance: DOXORUBICIN
     Route: 065
  8. DOXORUBICIN [Suspect]
     Active Substance: DOXORUBICIN
     Route: 065
  9. METHOTREXATE [Suspect]
     Active Substance: METHOTREXATE
     Indication: Plasmablastic lymphoma
  10. METHOTREXATE [Suspect]
     Active Substance: METHOTREXATE
     Route: 065
  11. METHOTREXATE [Suspect]
     Active Substance: METHOTREXATE
     Route: 065
  12. METHOTREXATE [Suspect]
     Active Substance: METHOTREXATE
  13. CYTARABINE [Suspect]
     Active Substance: CYTARABINE
     Indication: Plasmablastic lymphoma
  14. CYTARABINE [Suspect]
     Active Substance: CYTARABINE
     Route: 065
  15. CYTARABINE [Suspect]
     Active Substance: CYTARABINE
     Route: 065
  16. CYTARABINE [Suspect]
     Active Substance: CYTARABINE
  17. CARBOPLATIN [Suspect]
     Active Substance: CARBOPLATIN
     Indication: Plasmablastic lymphoma
  18. CARBOPLATIN [Suspect]
     Active Substance: CARBOPLATIN
     Route: 065
  19. CARBOPLATIN [Suspect]
     Active Substance: CARBOPLATIN
     Route: 065
  20. CARBOPLATIN [Suspect]
     Active Substance: CARBOPLATIN
  21. CYCLOPHOSPHAMIDE [Suspect]
     Active Substance: CYCLOPHOSPHAMIDE
     Indication: Plasmablastic lymphoma
  22. CYCLOPHOSPHAMIDE [Suspect]
     Active Substance: CYCLOPHOSPHAMIDE
  23. CYCLOPHOSPHAMIDE [Suspect]
     Active Substance: CYCLOPHOSPHAMIDE
     Route: 065
  24. CYCLOPHOSPHAMIDE [Suspect]
     Active Substance: CYCLOPHOSPHAMIDE
     Route: 065
  25. CYCLOPHOSPHAMIDE [Suspect]
     Active Substance: CYCLOPHOSPHAMIDE
  26. CYCLOPHOSPHAMIDE [Suspect]
     Active Substance: CYCLOPHOSPHAMIDE
  27. CYCLOPHOSPHAMIDE [Suspect]
     Active Substance: CYCLOPHOSPHAMIDE
     Route: 065
  28. CYCLOPHOSPHAMIDE [Suspect]
     Active Substance: CYCLOPHOSPHAMIDE
     Route: 065
  29. ETOPOSIDE [Suspect]
     Active Substance: ETOPOSIDE
     Indication: Plasmablastic lymphoma
  30. ETOPOSIDE [Suspect]
     Active Substance: ETOPOSIDE
  31. ETOPOSIDE [Suspect]
     Active Substance: ETOPOSIDE
     Route: 065
  32. ETOPOSIDE [Suspect]
     Active Substance: ETOPOSIDE
     Route: 065
  33. ETOPOSIDE [Suspect]
     Active Substance: ETOPOSIDE
  34. ETOPOSIDE [Suspect]
     Active Substance: ETOPOSIDE
  35. ETOPOSIDE [Suspect]
     Active Substance: ETOPOSIDE
     Route: 065
  36. ETOPOSIDE [Suspect]
     Active Substance: ETOPOSIDE
     Route: 065
  37. ETOPOSIDE [Suspect]
     Active Substance: ETOPOSIDE
  38. ETOPOSIDE [Suspect]
     Active Substance: ETOPOSIDE
     Route: 065
  39. ETOPOSIDE [Suspect]
     Active Substance: ETOPOSIDE
  40. ETOPOSIDE [Suspect]
     Active Substance: ETOPOSIDE
     Route: 065
  41. PREDNISONE [Suspect]
     Active Substance: PREDNISONE
     Indication: Plasmablastic lymphoma
  42. PREDNISONE [Suspect]
     Active Substance: PREDNISONE
     Route: 065
  43. PREDNISONE [Suspect]
     Active Substance: PREDNISONE
     Route: 065
  44. PREDNISONE [Suspect]
     Active Substance: PREDNISONE
  45. VINCRISTINE [Suspect]
     Active Substance: VINCRISTINE
     Indication: Plasmablastic lymphoma
  46. VINCRISTINE [Suspect]
     Active Substance: VINCRISTINE
  47. VINCRISTINE [Suspect]
     Active Substance: VINCRISTINE
     Route: 065
  48. VINCRISTINE [Suspect]
     Active Substance: VINCRISTINE
     Route: 065
  49. VINCRISTINE [Suspect]
     Active Substance: VINCRISTINE
  50. VINCRISTINE [Suspect]
     Active Substance: VINCRISTINE
  51. VINCRISTINE [Suspect]
     Active Substance: VINCRISTINE
     Route: 065
  52. VINCRISTINE [Suspect]
     Active Substance: VINCRISTINE
     Route: 065
  53. IFOSFAMIDE [Suspect]
     Active Substance: IFOSFAMIDE
     Indication: Plasmablastic lymphoma
  54. IFOSFAMIDE [Suspect]
     Active Substance: IFOSFAMIDE
  55. IFOSFAMIDE [Suspect]
     Active Substance: IFOSFAMIDE
     Route: 065
  56. IFOSFAMIDE [Suspect]
     Active Substance: IFOSFAMIDE
     Route: 065
  57. IFOSFAMIDE [Suspect]
     Active Substance: IFOSFAMIDE
  58. IFOSFAMIDE [Suspect]
     Active Substance: IFOSFAMIDE
  59. IFOSFAMIDE [Suspect]
     Active Substance: IFOSFAMIDE
     Route: 065
  60. IFOSFAMIDE [Suspect]
     Active Substance: IFOSFAMIDE
     Route: 065

REACTIONS (2)
  - Drug ineffective [Fatal]
  - Disease progression [Fatal]
